FAERS Safety Report 16388843 (Version 3)
Quarter: 2019Q4

REPORT INFORMATION
  Report Type: Spontaneous
  Country: US (occurrence: US)
  Receive Date: 20190604
  Receipt Date: 20191010
  Transmission Date: 20200122
  Serious: Yes (Hospitalization, Other)
  Sender: FDA-Public Use
  Company Number: US-PFIZER INC-2019234665

PATIENT
  Age: 79 Year
  Sex: Female

DRUGS (4)
  1. GABAPENTIN. [Suspect]
     Active Substance: GABAPENTIN
     Indication: NEUROPATHY PERIPHERAL
     Dosage: 900 MG, DAILY (THREE CAPSULES A DAY)
     Route: 048
     Dates: start: 20190103, end: 20190605
  2. ALBUTEROL [SALBUTAMOL] [Concomitant]
     Active Substance: ALBUTEROL
     Indication: CHRONIC OBSTRUCTIVE PULMONARY DISEASE
     Dosage: UNK, DAILY
     Dates: start: 20190619
  3. GABAPENTIN. [Suspect]
     Active Substance: GABAPENTIN
     Dosage: 20 MG, UNK, (2X)
     Dates: start: 201801
  4. GABAPENTIN. [Suspect]
     Active Substance: GABAPENTIN
     Indication: POST HERPETIC NEURALGIA
     Dosage: 600 MG, DAILY (TWO CAPSULES A DAY)
     Route: 048
     Dates: start: 2019

REACTIONS (4)
  - Pneumonia [Recovered/Resolved]
  - Somnolence [Recovered/Resolved]
  - Drug ineffective [Not Recovered/Not Resolved]
  - Blood pressure decreased [Recovered/Resolved]

NARRATIVE: CASE EVENT DATE: 20190520
